FAERS Safety Report 10521123 (Version 3)
Quarter: 2015Q1

REPORT INFORMATION
  Report Type: Report from Study
  Country: US (occurrence: US)
  Receive Date: 20141016
  Receipt Date: 20150126
  Transmission Date: 20150720
  Serious: Yes (Hospitalization)
  Sender: FDA-Public Use
  Company Number: US-BIOGENIDEC-2014BI104021

PATIENT
  Age: 53 Year
  Sex: Female

DRUGS (1)
  1. TECFIDERA [Suspect]
     Active Substance: DIMETHYL FUMARATE
     Indication: RELAPSING-REMITTING MULTIPLE SCLEROSIS
     Route: 048
     Dates: start: 20140101, end: 20141114

REACTIONS (7)
  - Pharyngeal oedema [Recovered/Resolved]
  - Flushing [Recovered/Resolved]
  - Diarrhoea [Recovered/Resolved]
  - Intestinal haemorrhage [Recovered/Resolved]
  - Muscular weakness [Unknown]
  - Throat tightness [Recovered/Resolved]
  - Throat irritation [Recovered/Resolved]

NARRATIVE: CASE EVENT DATE: 20140101
